FAERS Safety Report 12443415 (Version 1)
Quarter: 2016Q2

REPORT INFORMATION
  Report Type: Spontaneous
  Country: KP (occurrence: KP)
  Receive Date: 20160607
  Receipt Date: 20160607
  Transmission Date: 20160815
  Serious: Yes (Hospitalization, Other)
  Sender: FDA-Public Use
  Company Number: KP-SCIEGEN PHARMACEUTICALS INC-2016SCILIT00152

PATIENT
  Age: 53 Year
  Sex: Male

DRUGS (6)
  1. HEPARIN [Suspect]
     Active Substance: HEPARIN SODIUM
     Dosage: 6 U/KG/HR
     Route: 042
  2. ABCIXIMAB [Suspect]
     Active Substance: ABCIXIMAB
     Dosage: 0.125, ?G/KG, UNK
     Route: 042
  3. ABCIXIMAB [Suspect]
     Active Substance: ABCIXIMAB
     Indication: VASCULAR STENT THROMBOSIS
     Dosage: 0.25 MG/KG, UNK
     Route: 040
  4. CLOPIDOGREL [Suspect]
     Active Substance: CLOPIDOGREL BISULFATE
     Indication: PRODUCT USED FOR UNKNOWN INDICATION
     Dosage: 300 MG, UNK
     Route: 065
  5. HEPARIN [Suspect]
     Active Substance: HEPARIN SODIUM
     Indication: PRODUCT USED FOR UNKNOWN INDICATION
     Dosage: 4000 U BOLUS FOLLOWED BY A 860 U/H INFUSION
     Route: 040
  6. ACETYLSALICYLIC ACID [Suspect]
     Active Substance: ASPIRIN
     Indication: PRODUCT USED FOR UNKNOWN INDICATION
     Dosage: 300 MG, UNK
     Route: 065

REACTIONS (7)
  - Blood pressure decreased [Unknown]
  - Heart rate increased [Unknown]
  - Vascular stent thrombosis [Unknown]
  - Scrotal swelling [Unknown]
  - Hypovolaemic shock [Unknown]
  - Puncture site haemorrhage [Unknown]
  - Coronary artery occlusion [Unknown]
